FAERS Safety Report 4697507-9 (Version None)
Quarter: 2005Q2

REPORT INFORMATION
  Report Type: 
  Country: None (occurrence: None)
  Receive Date: 20050621
  Receipt Date: 20050602
  Transmission Date: 20051028
  Serious: Yes (Other)
  Sender: FDA-Public Use
  Company Number: US_0505117950

PATIENT
  Age: 89 Year
  Sex: Female

DRUGS (4)
  1. EVISTA [Suspect]
  2. FOSAMAX [Concomitant]
  3. ACTONEL [Concomitant]
  4. MIACALCIN [Concomitant]

REACTIONS (1)
  - NO ADVERSE EFFECT [None]
